FAERS Safety Report 8472259-5 (Version None)
Quarter: 2012Q2

REPORT INFORMATION
  Report Type: 
  Country: None (occurrence: None)
  Receive Date: 20120323
  Receipt Date: 20111220
  Transmission Date: 20120825
  Serious: Yes (Hospitalization, Other)
  Sender: FDA-Public Use
  Company Number: 163-21880-11082644

PATIENT
  Age: 77 Year
  Sex: Male
  Weight: 65.318 kg

DRUGS (14)
  1. LIPITOR [Concomitant]
  2. HYZAAR (HYZAAR)(UNKNOWN) [Concomitant]
  3. MULTIVITAMIN (MULTIVITAMINS)(UNKNOWN) [Concomitant]
  4. HYDROCHLOROTHIAZIDE [Concomitant]
  5. AMLODIPINE [Concomitant]
  6. CALCIUM +D (OS-CAL)(UNKNOWN) [Concomitant]
  7. METFORMIN (METFORMIN)(500 MILLIGRAM, TABLETS) [Concomitant]
  8. LENALIDOMIDE [Suspect]
     Indication: MULTIPLE MYELOMA
     Dosage: 10 MG, QD X 28 DAYS, PO,10 MG, 2 WEEKS ON, 2 WEEKS OFF, PO
     Route: 048
     Dates: start: 20090114
  9. LOSARTAN POTASSIUM [Concomitant]
  10. B12 (CYANOCOBALAMIN)(UNKNOWN) [Concomitant]
  11. NORVASC [Concomitant]
  12. TOPROL-XL [Concomitant]
  13. AREDIA [Concomitant]
  14. ASPIRIN [Concomitant]

REACTIONS (3)
  - ANAEMIA [None]
  - CELLULITIS [None]
  - LYME DISEASE [None]
